FAERS Safety Report 13371935 (Version 1)
Quarter: 2017Q1

REPORT INFORMATION
  Report Type: Report from Study
  Country: US (occurrence: US)
  Receive Date: 20170326
  Receipt Date: 20170326
  Transmission Date: 20170429
  Serious: No
  Sender: FDA-Public Use
  Company Number: US-AMGEN-USASL2017041877

PATIENT
  Age: 39 Year
  Sex: Female

DRUGS (4)
  1. ENBREL [Suspect]
     Active Substance: ETANERCEPT
     Indication: ANKYLOSING SPONDYLITIS
     Dosage: 50 MG, QWK
     Route: 065
     Dates: start: 201610
  2. MTX [Concomitant]
     Active Substance: METHOTREXATE SODIUM
     Indication: JOINT SWELLING
     Dosage: UNK
     Dates: end: 2017
  3. MTX [Concomitant]
     Active Substance: METHOTREXATE SODIUM
     Indication: ARTHRALGIA
     Dosage: 0.4ML OF 25MG/ML, QWK
     Dates: start: 20170309
  4. MTX [Concomitant]
     Active Substance: METHOTREXATE SODIUM
     Indication: BACK PAIN

REACTIONS (6)
  - Joint swelling [Not Recovered/Not Resolved]
  - Back pain [Unknown]
  - Wrong technique in product usage process [Unknown]
  - Arthralgia [Not Recovered/Not Resolved]
  - Skin discolouration [Recovering/Resolving]
  - Injection site pain [Unknown]

NARRATIVE: CASE EVENT DATE: 2017
